FAERS Safety Report 5320218-3 (Version None)
Quarter: 2007Q2

REPORT INFORMATION
  Report Type: 
  Country: None (occurrence: None)
  Receive Date: 20070509
  Receipt Date: 20070426
  Transmission Date: 20071010
  Serious: Yes (Life-Threatening)
  Sender: FDA-Public Use
  Company Number: B0453725A

PATIENT
  Sex: Male
  Weight: 3.1 kg

DRUGS (6)
  1. ZOFRAN [Suspect]
     Indication: VOMITING
  2. CYCLIZINE [Suspect]
     Indication: VOMITING
  3. OMEPRAZOLE [Suspect]
     Indication: VOMITING
     Dosage: 40G PER DAY
     Dates: start: 20070101
  4. PROCHLORPERAZINE [Suspect]
  5. METOCLOPRAMIDE [Concomitant]
     Indication: VOMITING
     Dosage: 10MG PER DAY
     Dates: start: 20061208, end: 20061218
  6. FERROUS FUMARATE [Concomitant]
     Indication: ANAEMIA
     Dates: start: 20061208

REACTIONS (5)
  - ABDOMINAL DISTENSION [None]
  - DRUG EXPOSURE DURING PREGNANCY [None]
  - LAPAROTOMY [None]
  - MECONIUM ABNORMAL [None]
  - NECROTISING ENTEROCOLITIS NEONATAL [None]
